FAERS Safety Report 8603223 (Version 6)
Quarter: 2013Q2

REPORT INFORMATION
  Report Type: Report from Study
  Country: JP (occurrence: JP)
  Receive Date: 20120607
  Receipt Date: 20130517
  Transmission Date: 20140414
  Serious: Yes (Hospitalization)
  Sender: FDA-Public Use
  Company Number: JP-GLAXOSMITHKLINE-B0805370A

PATIENT
  Age: 28 Year
  Sex: Female
  Weight: 33 kg

DRUGS (30)
  1. ARRANON [Suspect]
     Indication: PRECURSOR T-LYMPHOBLASTIC LYMPHOMA/LEUKAEMIA
     Dosage: 1500MGM2 ALTERNATE DAYS
     Route: 042
     Dates: start: 20120404, end: 20120408
  2. ARRANON [Suspect]
     Indication: PRECURSOR T-LYMPHOBLASTIC LYMPHOMA/LEUKAEMIA
     Dosage: 1500MGM2 ALTERNATE DAYS
     Route: 042
     Dates: start: 20120522, end: 20120526
  3. LEUNASE [Suspect]
     Indication: NEOPLASM MALIGNANT
     Route: 042
     Dates: start: 20120419, end: 20120422
  4. PENTAGIN [Suspect]
     Indication: PRODUCT USED FOR UNKNOWN INDICATION
     Dates: start: 20120331
  5. MORPHINE HYDROCHLORIDE [Suspect]
     Dates: start: 20120425, end: 20120430
  6. FENTOS [Concomitant]
     Route: 061
     Dates: start: 20120501
  7. NEOPHAGEN C [Concomitant]
     Route: 065
     Dates: start: 20120522, end: 20120526
  8. PREDONINE [Concomitant]
     Indication: NEOPLASM MALIGNANT
     Dates: start: 20120403, end: 20120613
  9. MODACIN [Concomitant]
     Route: 042
     Dates: start: 20120402, end: 20120413
  10. GENTACIN [Concomitant]
     Dates: start: 20120402, end: 20120413
  11. KENKETSU GLOVENIN-I-NICHIYAKU [Concomitant]
     Dates: start: 20120402, end: 20120403
  12. ZOVIRAX [Concomitant]
     Route: 042
     Dates: start: 20120401, end: 20120407
  13. ATARAX [Concomitant]
     Indication: PROPHYLAXIS OF NAUSEA AND VOMITING
     Dates: start: 20120331
  14. EMEND [Concomitant]
     Indication: PROPHYLAXIS OF NAUSEA AND VOMITING
     Route: 048
     Dates: start: 20120404, end: 20120406
  15. POLYMIXIN B SULFATE [Concomitant]
     Route: 048
     Dates: start: 20120329, end: 20120607
  16. BIOFERMIN [Concomitant]
     Route: 048
     Dates: start: 20120329, end: 20120607
  17. ALBUMIN TANNATE [Concomitant]
     Route: 048
     Dates: start: 20120329, end: 20120607
  18. VALTREX [Concomitant]
     Route: 048
     Dates: start: 20120406, end: 20120426
  19. KYTRIL [Concomitant]
     Dates: start: 20120404, end: 20120408
  20. KYTRIL [Concomitant]
     Dates: start: 20120419, end: 20120422
  21. DIAMOX [Concomitant]
     Dates: start: 20120404, end: 20120411
  22. MEYLON [Concomitant]
     Route: 042
     Dates: start: 20120404, end: 20120411
  23. RASURITEK [Concomitant]
     Route: 042
     Dates: start: 20120404, end: 20120404
  24. NOVAMIN [Concomitant]
     Indication: PROPHYLAXIS OF NAUSEA AND VOMITING
     Route: 030
     Dates: start: 20120425
  25. SLOW-K [Concomitant]
     Route: 048
     Dates: start: 20120406, end: 20120526
  26. FRESH FROZEN PLASMA [Concomitant]
     Route: 042
     Dates: start: 20120402, end: 20120406
  27. CONCENTRATED HUMAN RED BLOOD CELLS [Concomitant]
     Route: 042
     Dates: start: 20120406, end: 20120406
  28. PLATELET CONCENTRATE [Concomitant]
     Route: 042
     Dates: start: 20120409, end: 20120409
  29. AZUNOL [Concomitant]
     Route: 061
     Dates: start: 20120401, end: 20120410
  30. BORRAZA-G [Concomitant]
     Route: 061
     Dates: start: 20120403

REACTIONS (11)
  - Urinary retention [Recovering/Resolving]
  - Sepsis [Recovered/Resolved]
  - Rash [Recovered/Resolved]
  - Blood creatine phosphokinase increased [Recovered/Resolved]
  - White blood cell count decreased [Recovered/Resolved]
  - Neutrophil count decreased [Recovered/Resolved]
  - Myalgia [Recovered/Resolved]
  - Hepatic function abnormal [Recovered/Resolved]
  - Urticaria [Recovered/Resolved]
  - Vomiting [Recovered/Resolved]
  - Platelet count decreased [Recovered/Resolved]
